FAERS Safety Report 21173358 (Version 1)
Quarter: 2022Q3

REPORT INFORMATION
  Report Type: Spontaneous
  Country: US (occurrence: None)
  Receive Date: 20220804
  Receipt Date: 20220804
  Transmission Date: 20221027
  Serious: Yes (Life-Threatening, Hospitalization)
  Sender: FDA-Public Use
  Company Number: None

PATIENT
  Age: 80 Year
  Sex: Male
  Weight: 122 kg

DRUGS (1)
  1. ELIQUIS [Suspect]
     Active Substance: APIXABAN

REACTIONS (1)
  - Subarachnoid haemorrhage [None]

NARRATIVE: CASE EVENT DATE: 20220804
